FAERS Safety Report 20033534 (Version 1)
Quarter: 2021Q4

REPORT INFORMATION
  Report Type: Report from Study
  Country: KE (occurrence: KE)
  Receive Date: 20211104
  Receipt Date: 20211104
  Transmission Date: 20220304
  Serious: Yes (Death, Life-Threatening, Hospitalization, Other)
  Sender: FDA-Public Use
  Company Number: KE-NOVARTISPH-NVSC2021KE251832

PATIENT
  Age: 71 Year
  Sex: Female

DRUGS (1)
  1. SACUBITRIL\VALSARTAN [Suspect]
     Active Substance: SACUBITRIL\VALSARTAN
     Indication: Cardiac failure
     Dosage: 50 MG, BID
     Route: 048
     Dates: start: 202105

REACTIONS (9)
  - Angina pectoris [Fatal]
  - Dyspnoea [Fatal]
  - Chest pain [Fatal]
  - Palpitations [Fatal]
  - Dizziness [Fatal]
  - Abdominal pain upper [Fatal]
  - Cardiac failure [Fatal]
  - Acute myocardial infarction [Fatal]
  - Chronic kidney disease [Fatal]

NARRATIVE: CASE EVENT DATE: 20211001
